FAERS Safety Report 18491013 (Version 2)
Quarter: 2020Q4

REPORT INFORMATION
  Report Type: Spontaneous
  Country: CN (occurrence: CN)
  Receive Date: 20201111
  Receipt Date: 20201113
  Transmission Date: 20210114
  Serious: Yes (Hospitalization)
  Sender: FDA-Public Use
  Company Number: CN-JNJFOC-20201113083

PATIENT
  Age: 13 Day
  Sex: Male
  Weight: 1.75 kg

DRUGS (1)
  1. MOTRIN INFANTS [Suspect]
     Active Substance: IBUPROFEN
     Indication: PATENT DUCTUS ARTERIOSUS
     Route: 048
     Dates: start: 20201017, end: 20201018

REACTIONS (1)
  - Urine output decreased [Recovering/Resolving]

NARRATIVE: CASE EVENT DATE: 20201017
